FAERS Safety Report 11884079 (Version 1)
Quarter: 2015Q4

REPORT INFORMATION
  Report Type: Spontaneous
  Country: US (occurrence: None)
  Receive Date: 20151231
  Receipt Date: 20151231
  Transmission Date: 20160305
  Serious: Yes (Hospitalization)
  Sender: FDA-Public Use
  Company Number: None

PATIENT
  Age: 83 Year
  Sex: Male
  Weight: 63.9 kg

DRUGS (3)
  1. ABIRATERONE [Suspect]
     Active Substance: ABIRATERONE
     Dosage: DAILY X28 DAYS
     Route: 048
  2. DASATINIB [Suspect]
     Active Substance: DASATINIB
     Indication: PROSTATE CANCER METASTATIC
     Dosage: DAILY X28 DAYS
     Route: 048
     Dates: start: 20130913, end: 20151102
  3. PREDNISONE. [Suspect]
     Active Substance: PREDNISONE
     Dosage: DAILY X28 DAYS
     Route: 048

REACTIONS (4)
  - Pleural effusion [None]
  - Posterior reversible encephalopathy syndrome [None]
  - Lethargy [None]
  - Amnesia [None]

NARRATIVE: CASE EVENT DATE: 20151102
